FAERS Safety Report 6225273-4 (Version None)
Quarter: 2009Q2

REPORT INFORMATION
  Report Type: 
  Country: None (occurrence: None)
  Receive Date: 20090612
  Receipt Date: 20090410
  Transmission Date: 20091009
  Serious: No
  Sender: FDA-Public Use
  Company Number: US-ABBOTT-09P-163-0567620-00

PATIENT
  Sex: Female
  Weight: 67.646 kg

DRUGS (8)
  1. HUMIRA [Suspect]
     Indication: RHEUMATOID ARTHRITIS
     Route: 058
     Dates: start: 20080601, end: 20090201
  2. HUMIRA [Suspect]
     Indication: CROHN'S DISEASE
  3. CYMBALTA [Concomitant]
     Indication: DEPRESSION
  4. METHADONE HCL [Concomitant]
     Indication: BACK PAIN
  5. PERCOCET [Concomitant]
     Indication: BACK PAIN
  6. PREMPRO [Concomitant]
     Indication: MENOPAUSE
  7. PENTAZA [Concomitant]
     Indication: DRUG USE FOR UNKNOWN INDICATION
  8. ALTRAM [Concomitant]
     Indication: ARTHRITIS

REACTIONS (2)
  - ARTHRITIS [None]
  - CROHN'S DISEASE [None]
